FAERS Safety Report 23864546 (Version 3)
Quarter: 2025Q4

REPORT INFORMATION
  Report Type: Spontaneous
  Country: US (occurrence: None)
  Receive Date: 20240516
  Receipt Date: 20251007
  Transmission Date: 20260118
  Serious: No
  Sender: INCYTE
  Company Number: US-INCYTE CORPORATION-2024IN005055

PATIENT
  Age: 41 Year

DRUGS (3)
  1. JAKAFI [Suspect]
     Active Substance: RUXOLITINIB
     Indication: Product used for unknown indication
     Dosage: 5 MILLIGRAM, 1 QAM AND 2 QPM
  2. JAKAFI [Suspect]
     Active Substance: RUXOLITINIB
     Dosage: 5 MILLIGRAM, BID
  3. JAKAFI [Suspect]
     Active Substance: RUXOLITINIB
     Dosage: 5 MILLIGRAM, 1 QAM AND 2 QPM

REACTIONS (5)
  - Bone loss [Unknown]
  - Pain [Unknown]
  - Product dose omission issue [Unknown]
  - Asthenia [Unknown]
  - Fatigue [Unknown]
